FAERS Safety Report 14543845 (Version 1)
Quarter: 2018Q1

REPORT INFORMATION
  Report Type: Spontaneous
  Country: MX (occurrence: MX)
  Receive Date: 20180216
  Receipt Date: 20180216
  Transmission Date: 20180509
  Serious: Yes (Hospitalization)
  Sender: FDA-Public Use
  Company Number: MX-BIOMARINAP-MX-2018-117105

PATIENT
  Age: 23 Year
  Sex: Female
  Weight: 37 kg

DRUGS (3)
  1. ALDURAZYME [Suspect]
     Active Substance: LARONIDASE
     Indication: MUCOPOLYSACCHARIDOSIS I
     Dosage: UNK, QW
     Route: 041
     Dates: start: 2011
  2. VALPROATE [Concomitant]
     Active Substance: VALPROIC ACID
     Indication: SEIZURE
  3. MAGNESIUM                          /00123201/ [Concomitant]
     Indication: SEIZURE
     Dosage: UNK
     Dates: start: 2000

REACTIONS (1)
  - Catheter placement [Unknown]
